FAERS Safety Report 17807936 (Version 3)
Quarter: 2020Q2

REPORT INFORMATION
  Report Type: Spontaneous
  Country: PL (occurrence: PL)
  Receive Date: 20200520
  Receipt Date: 20200630
  Transmission Date: 20200714
  Serious: Yes (Hospitalization)
  Sender: FDA-Public Use
  Company Number: NVSC2020PL049415

PATIENT
  Age: 3 Year
  Sex: Male

DRUGS (16)
  1. AZITHROMYCIN DIHYDRATE. [Suspect]
     Active Substance: AZITHROMYCIN DIHYDRATE
     Indication: DISSEMINATED TUBERCULOSIS
     Dosage: UNK
     Route: 048
  2. LEVOFLOXACIN. [Suspect]
     Active Substance: LEVOFLOXACIN
     Indication: PRODUCT USED FOR UNKNOWN INDICATION
     Dosage: 8.5 MG/KG
     Route: 042
  3. CEFOTAXIME SODIUM [Suspect]
     Active Substance: CEFOTAXIME SODIUM
     Indication: PNEUMONIA
  4. CEFUROXIME. [Suspect]
     Active Substance: CEFUROXIME
     Indication: PNEUMONIA
     Dosage: UNK
     Route: 065
  5. PREDNISONE. [Suspect]
     Active Substance: PREDNISONE
     Indication: PRODUCT USED FOR UNKNOWN INDICATION
     Dosage: 1.5 MG/KG
     Route: 065
  6. RIFAMPICIN [Suspect]
     Active Substance: RIFAMPIN
     Dosage: 16 MG/KG
     Route: 042
  7. AMOXICILLIN. [Suspect]
     Active Substance: AMOXICILLIN
     Indication: RESPIRATORY TRACT INFECTION
     Dosage: UNK
     Route: 065
  8. CLARITHROMYCIN. [Suspect]
     Active Substance: CLARITHROMYCIN
     Indication: PNEUMONIA
     Dosage: UNK
     Route: 065
  9. STREPTOMYCIN [Suspect]
     Active Substance: STREPTOMYCIN SULFATE
     Indication: PRODUCT USED FOR UNKNOWN INDICATION
     Dosage: 16 MG/KG
     Route: 030
  10. CEFOTAXIME SODIUM [Suspect]
     Active Substance: CEFOTAXIME SODIUM
     Indication: DISSEMINATED TUBERCULOSIS
     Dosage: UNK
     Route: 048
  11. BCG VACCINE [Suspect]
     Active Substance: BCG VACCINE
     Indication: IMMUNISATION
     Dosage: UNK
     Route: 065
  12. RIFAMPICIN [Suspect]
     Active Substance: RIFAMPIN
     Indication: DISSEMINATED TUBERCULOSIS
     Dosage: 15 MG/KG
     Route: 048
  13. ISONIAZID. [Suspect]
     Active Substance: ISONIAZID
     Indication: DISSEMINATED TUBERCULOSIS
     Dosage: 10 MG/KG
     Route: 048
  14. AMIKACIN. [Suspect]
     Active Substance: AMIKACIN
     Indication: PNEUMONIA
     Dosage: UNK
     Route: 065
  15. ETHAMBUTOL [Suspect]
     Active Substance: ETHAMBUTOL HYDROCHLORIDE
     Indication: DISSEMINATED TUBERCULOSIS
     Dosage: 20 MG/KG
     Route: 048
  16. PYRAZINAMIDE. [Suspect]
     Active Substance: PYRAZINAMIDE
     Indication: DISSEMINATED TUBERCULOSIS
     Dosage: 35 MG/KG
     Route: 048

REACTIONS (7)
  - Vaccination failure [Unknown]
  - Cachexia [Unknown]
  - Tuberculosis gastrointestinal [Recovering/Resolving]
  - Drug ineffective [Unknown]
  - Immune reconstitution inflammatory syndrome [Recovered/Resolved]
  - Gastrointestinal obstruction [Recovered/Resolved]
  - Decreased appetite [Unknown]
